FAERS Safety Report 7814677-1 (Version None)
Quarter: 2011Q4

REPORT INFORMATION
  Report Type: 
  Country: None (occurrence: None)
  Receive Date: 20111014
  Receipt Date: 20110929
  Transmission Date: 20120403
  Serious: Yes (Hospitalization)
  Sender: FDA-Public Use
  Company Number: JP-ROCHE-1002175

PATIENT
  Sex: Male
  Weight: 44 kg

DRUGS (28)
  1. AVASTIN [Suspect]
     Route: 041
     Dates: start: 20100608, end: 20101213
  2. RABEPRAZOLE SODIUM [Concomitant]
     Indication: GASTRIC ULCER
     Route: 048
     Dates: start: 20090421
  3. OXALIPLATIN [Suspect]
     Route: 041
     Dates: start: 20100608, end: 20100608
  4. FLUOROURACIL [Concomitant]
     Route: 041
     Dates: start: 20100608, end: 20100601
  5. FLUOROURACIL [Concomitant]
     Route: 041
     Dates: start: 20100101, end: 20100101
  6. XELODA [Suspect]
     Indication: COLON CANCER METASTATIC
     Dosage: IT IS ONE ADMINISTERING WEEKLY HOLIDAY MEDICINE FOR TWO WEEKS.
     Route: 048
     Dates: start: 20100312, end: 20100513
  7. FLUOROURACIL [Concomitant]
     Indication: COLON CANCER METASTATIC
     Route: 041
     Dates: start: 20091026, end: 20091210
  8. ETODOLAC [Concomitant]
     Route: 048
     Dates: start: 20091020, end: 20091210
  9. DOGMATYL [Concomitant]
     Indication: DECREASED APPETITE
     Route: 048
     Dates: start: 20091030
  10. ISOVORIN [Concomitant]
     Route: 041
     Dates: start: 20100608, end: 20100608
  11. ISOVORIN [Concomitant]
     Route: 041
     Dates: start: 20100818, end: 20101213
  12. MAGMITT [Concomitant]
     Indication: CONSTIPATION
     Route: 048
     Dates: start: 20091021
  13. SODIUM BICARBONATE [Concomitant]
     Indication: PROPHYLAXIS
     Route: 048
     Dates: start: 20100817, end: 20101213
  14. AVASTIN [Suspect]
     Indication: COLON CANCER METASTATIC
     Route: 041
     Dates: start: 20100312, end: 20100422
  15. OXYCONTIN [Concomitant]
     Indication: PAIN
     Route: 048
     Dates: start: 20091221
  16. PRIMPERAN (JAPAN) [Concomitant]
     Indication: PROPHYLAXIS
     Route: 048
     Dates: start: 20100312, end: 20101213
  17. URSO 250 [Concomitant]
     Indication: PROPHYLAXIS
     Route: 048
     Dates: start: 20100817, end: 20101213
  18. ALOXI [Concomitant]
     Indication: PROPHYLAXIS
     Route: 042
     Dates: start: 20100608, end: 20101213
  19. OXALIPLATIN [Suspect]
     Indication: COLON CANCER METASTATIC
     Route: 041
     Dates: start: 20091026, end: 20091210
  20. FLUOROURACIL [Concomitant]
     Route: 041
     Dates: start: 20100818, end: 20101213
  21. ISOVORIN [Concomitant]
     Route: 041
     Dates: start: 20100101, end: 20100101
  22. OXALIPLATIN [Suspect]
     Route: 041
     Dates: start: 20091225, end: 20100217
  23. OXALIPLATIN [Suspect]
     Route: 041
     Dates: start: 20100312, end: 20100422
  24. FLUOROURACIL [Concomitant]
     Route: 041
     Dates: start: 20091225, end: 20100217
  25. ISOVORIN [Concomitant]
     Indication: COLON CANCER METASTATIC
     Route: 041
     Dates: start: 20091026, end: 20100217
  26. MUCOSTA [Concomitant]
     Indication: GASTRIC ULCER
     Route: 048
     Dates: start: 20091210
  27. TOPOTECAN [Concomitant]
     Indication: COLON CANCER METASTATIC
     Route: 041
     Dates: start: 20100818, end: 20101213
  28. DECADRON [Concomitant]
     Indication: PROPHYLAXIS
     Route: 048
     Dates: start: 20100312, end: 20101213

REACTIONS (3)
  - GASTRIC ULCER PERFORATION [None]
  - PALMAR-PLANTAR ERYTHRODYSAESTHESIA SYNDROME [None]
  - HYPERSENSITIVITY [None]
